FAERS Safety Report 19143157 (Version 3)
Quarter: 2021Q2

REPORT INFORMATION
  Report Type: Spontaneous
  Country: JP (occurrence: JP)
  Receive Date: 20210415
  Receipt Date: 20210511
  Transmission Date: 20210717
  Serious: Yes (Death, Hospitalization, Other)
  Sender: FDA-Public Use
  Company Number: JP-009507513-2002JPN001575J

PATIENT
  Age: 8 Decade
  Sex: Male
  Weight: 71 kg

DRUGS (3)
  1. CARBOPLATIN. [Suspect]
     Active Substance: CARBOPLATIN
     Indication: LUNG SQUAMOUS CELL CARCINOMA STAGE IV
     Dosage: 510 MILLIGRAM, EVERY 4 WEEKS
     Route: 041
     Dates: start: 20191107, end: 20200708
  2. PACLITAXEL ALBUMIN [Suspect]
     Active Substance: PACLITAXEL
     Indication: LUNG SQUAMOUS CELL CARCINOMA STAGE IV
     Dosage: 180 MILLIGRAM, QW
     Route: 041
     Dates: start: 20191107, end: 20200708
  3. KEYTRUDA [Suspect]
     Active Substance: PEMBROLIZUMAB
     Indication: LUNG SQUAMOUS CELL CARCINOMA STAGE IV
     Dosage: 200 MILLIGRAM, Q3W
     Route: 041
     Dates: start: 20191107, end: 20200108

REACTIONS (2)
  - Malignant neoplasm progression [Fatal]
  - Lung disorder [Recovering/Resolving]

NARRATIVE: CASE EVENT DATE: 2020
